FAERS Safety Report 18437215 (Version 1)
Quarter: 2020Q4

REPORT INFORMATION
  Report Type: Spontaneous
  Country: FR (occurrence: FR)
  Receive Date: 20201028
  Receipt Date: 20201028
  Transmission Date: 20210114
  Serious: Yes (Hospitalization)
  Sender: FDA-Public Use
  Company Number: FR-MYLANLABS-2019M1051543

PATIENT
  Age: 82 Year
  Sex: Male
  Weight: 83 kg

DRUGS (8)
  1. TRIATEC                            /00885601/ [Suspect]
     Active Substance: RAMIPRIL
     Indication: HYPERTENSION
     Dosage: 2.5 MILLIGRAM, QD
     Route: 048
     Dates: end: 20180924
  2. GENTAMICINE                        /00047101/ [Suspect]
     Active Substance: GENTAMICIN
     Indication: ENDOCARDITIS
     Dosage: 190 MILLIGRAM, QD
     Route: 065
     Dates: start: 20180907, end: 20180921
  3. AMOXICILLIN. [Suspect]
     Active Substance: AMOXICILLIN
     Indication: INTERVERTEBRAL DISCITIS
     Dosage: 6 MILLIGRAM, QD
     Route: 048
     Dates: start: 20180912, end: 20180919
  4. FUROSEMIDE. [Suspect]
     Active Substance: FUROSEMIDE
     Indication: CARDIAC FAILURE
     Dosage: 40 MILLIGRAM, QD
     Route: 048
     Dates: end: 201809
  5. OPTIRAY [Suspect]
     Active Substance: IOVERSOL
     Indication: SCAN WITH CONTRAST
     Dosage: 90 MILLILITER
     Route: 042
     Dates: start: 20180920, end: 20180920
  6. CEFTRIAXONE. [Suspect]
     Active Substance: CEFTRIAXONE
     Indication: ENDOCARDITIS
     Dosage: 2 MILLIGRAM
     Route: 042
     Dates: start: 20180918, end: 20180924
  7. AMOXICILLIN. [Suspect]
     Active Substance: AMOXICILLIN
     Indication: ENDOCARDITIS
     Dosage: PUIS 3G /24H
     Route: 042
     Dates: start: 20180907, end: 20181019
  8. AMOXICILLINE/ACIDE CLAVULANIQUE PANPHARMA [Suspect]
     Active Substance: AMOXICILLIN\CLAVULANIC ACID
     Indication: ENDOCARDITIS
     Dosage: 12 MILLIGRAM, QD
     Route: 042
     Dates: start: 20180919, end: 20180924

REACTIONS (1)
  - Acute kidney injury [Recovering/Resolving]

NARRATIVE: CASE EVENT DATE: 20180921
